FAERS Safety Report 8566153-9 (Version None)
Quarter: 2012Q3

REPORT INFORMATION
  Report Type: 
  Country: None (occurrence: None)
  Receive Date: 20120803
  Receipt Date: 20110824
  Transmission Date: 20120928
  Serious: No
  Sender: FDA-Public Use
  Company Number: US-ABBOTT-11P-163-0849208-00

PATIENT
  Sex: Female
  Weight: 78.088 kg

DRUGS (5)
  1. NIASPAN [Suspect]
     Dates: start: 20110824
  2. VITAMIN B-12 [Concomitant]
     Indication: PRODUCT USED FOR UNKNOWN INDICATION
  3. MAGNESIUM [Concomitant]
     Indication: PRODUCT USED FOR UNKNOWN INDICATION
  4. NIASPAN [Suspect]
     Indication: BLOOD CHOLESTEROL
     Dates: start: 20110806, end: 20110806
  5. NORVASC [Concomitant]
     Indication: MIGRAINE

REACTIONS (5)
  - CHILLS [None]
  - PARAESTHESIA [None]
  - SKIN BURNING SENSATION [None]
  - TREMOR [None]
  - ERYTHEMA [None]
